FAERS Safety Report 9407216 (Version 1)
Quarter: 2013Q3

REPORT INFORMATION
  Report Type: Spontaneous
  Country: LT (occurrence: LT)
  Receive Date: 20130718
  Receipt Date: 20130718
  Transmission Date: 20140515
  Serious: Yes (Death)
  Sender: FDA-Public Use
  Company Number: LT-ASTRAZENECA-2013SE52484

PATIENT
  Age: 80 Year
  Sex: Male

DRUGS (2)
  1. BRILIQUE [Suspect]
     Route: 048
  2. WARFARINE [Suspect]
     Route: 048

REACTIONS (1)
  - Overdose [Fatal]
